FAERS Safety Report 8623712 (Version 5)
Quarter: 2013Q3

REPORT INFORMATION
  Report Type: Report from Study
  Country: US (occurrence: US)
  Receive Date: 20120620
  Receipt Date: 20130819
  Transmission Date: 20140515
  Serious: Yes (Death, Other)
  Sender: FDA-Public Use
  Company Number: US-BRISTOL-MYERS SQUIBB COMPANY-16679581

PATIENT
  Age: 54 Year
  Sex: Female
  Weight: 83.09 kg

DRUGS (1)
  1. IPILIMUMAB [Suspect]
     Indication: MALIGNANT MELANOMA
     Dosage: LAST DOSE: 29MAY12,NO OF COURSES:3 830 MG
     Route: 042
     Dates: start: 20120416

REACTIONS (4)
  - Sudden death [Fatal]
  - Embolism [Fatal]
  - Renal failure chronic [Unknown]
  - Hyponatraemia [Unknown]
